FAERS Safety Report 9149483 (Version 2)
Quarter: 2013Q1

REPORT INFORMATION
  Report Type: Report from Study
  Country: FR (occurrence: FR)
  Receive Date: 20130308
  Receipt Date: 20130315
  Transmission Date: 20140127
  Serious: Yes (Other)
  Sender: FDA-Public Use
  Company Number: FR-ASTELLAS-2013EU001924

PATIENT
  Sex: Female
  Weight: 52 kg

DRUGS (1)
  1. SOLIFENACIN [Suspect]
     Indication: URINARY INCONTINENCE
     Dosage: 10 MG, UID/QD
     Route: 048

REACTIONS (2)
  - Off label use [Unknown]
  - Breast cancer recurrent [Unknown]
